FAERS Safety Report 9766055 (Version 3)
Quarter: 2014Q1

REPORT INFORMATION
  Report Type: Report from Study
  Country: JP (occurrence: JP)
  Receive Date: 20131217
  Receipt Date: 20140108
  Transmission Date: 20141002
  Serious: Yes (Death)
  Sender: FDA-Public Use
  Company Number: JP-JNJFOC-20130915410

PATIENT
  Age: 75 Year
  Sex: Female

DRUGS (9)
  1. ONE DURO PATCH [Suspect]
     Indication: CANCER PAIN
     Route: 062
     Dates: start: 20111128, end: 20120125
  2. FENTANYL CITRATE [Concomitant]
     Indication: CANCER PAIN
     Dosage: RESCUE DOSE
     Route: 065
     Dates: start: 20111130, end: 20111201
  3. RINDERON [Concomitant]
     Indication: CACHEXIA
     Route: 048
     Dates: start: 20111128, end: 20120113
  4. RINDERON [Concomitant]
     Indication: MALIGNANT ASCITES
     Route: 048
     Dates: start: 20111128, end: 20120113
  5. HICORT [Concomitant]
     Indication: CACHEXIA
     Route: 065
     Dates: start: 20120111, end: 20120125
  6. HICORT [Concomitant]
     Indication: MALIGNANT ASCITES
     Route: 065
     Dates: start: 20120111, end: 20120125
  7. BROTIZOLAM [Concomitant]
     Indication: INSOMNIA
     Route: 048
     Dates: start: 20111124, end: 20120113
  8. LIASOPHIN [Concomitant]
     Indication: DEVICE RELATED INFECTION
     Route: 065
     Dates: start: 20111117, end: 20111129
  9. CEFMETAZOLE SODIUM [Concomitant]
     Indication: DEVICE RELATED INFECTION
     Route: 042
     Dates: start: 20111129, end: 20111213

REACTIONS (5)
  - Ovarian cancer [Fatal]
  - Malignant ascites [Fatal]
  - Cachexia [Fatal]
  - Depressed level of consciousness [Fatal]
  - Drug intolerance [Unknown]
